FAERS Safety Report 4534862-4 (Version None)
Quarter: 2004Q4

REPORT INFORMATION
  Report Type: 
  Country: None (occurrence: None)
  Receive Date: 20041222
  Receipt Date: 20040514
  Transmission Date: 20050328
  Serious: No
  Sender: FDA-Public Use
  Company Number: US-BRISTOL-MYERS SQUIBB COMPANY-12587945

PATIENT
  Age: 63 Year
  Sex: Male

DRUGS (6)
  1. PRAVACHOL [Suspect]
     Indication: BLOOD CHOLESTEROL INCREASED
     Dosage: STARTED ON 20 MG YEARS AGO.  INCREASED TO 40 MG THEN DECREASED BACK TO 20 MG
     Route: 048
  2. CARDIZEM [Concomitant]
  3. ZOLOFT [Concomitant]
  4. ACCUPRIL [Concomitant]
  5. CARDURA [Concomitant]
  6. VOLTAREN-XR [Concomitant]

REACTIONS (2)
  - FATIGUE [None]
  - OEDEMA PERIPHERAL [None]
